FAERS Safety Report 5115505-8 (Version None)
Quarter: 2006Q3

REPORT INFORMATION
  Report Type: 
  Country: None (occurrence: None)
  Receive Date: 20060927
  Receipt Date: 20060915
  Transmission Date: 20061208
  Serious: Yes (Hospitalization, Disabling)
  Sender: FDA-Public Use
  Company Number: 2006SE04987

PATIENT
  Age: 8566 Day
  Sex: Male

DRUGS (3)
  1. SEROQUEL [Suspect]
     Indication: SCHIZOPHRENIA
     Route: 048
     Dates: start: 20050718, end: 20050101
  2. ABILIFY [Suspect]
     Indication: SCHIZOPHRENIA
     Route: 048
     Dates: start: 20050616, end: 20050101
  3. TOPIMAX [Concomitant]
     Dates: start: 20050120, end: 20050101

REACTIONS (4)
  - DIPLOPIA [None]
  - EYELID PTOSIS [None]
  - MONONEURITIS [None]
  - PUPILLARY DISORDER [None]
